FAERS Safety Report 23702782 (Version 1)
Quarter: 2024Q2

REPORT INFORMATION
  Report Type: Spontaneous
  Country: US (occurrence: US)
  Receive Date: 20240403
  Receipt Date: 20240403
  Transmission Date: 20240716
  Serious: No
  Sender: FDA-Public Use
  Company Number: US-ALKERMES INC.-ALK-2024-000372

PATIENT
  Sex: Male
  Weight: 97.506 kg

DRUGS (2)
  1. VIVITROL [Suspect]
     Active Substance: NALTREXONE
     Indication: Dependence
     Dosage: 380 MILLIGRAM, Q28D
     Route: 030
     Dates: start: 20240130
  2. VIVITROL [Suspect]
     Active Substance: NALTREXONE
     Indication: Illness

REACTIONS (9)
  - Gait disturbance [Recovered/Resolved]
  - Drug hypersensitivity [Unknown]
  - Injection site nodule [Not Recovered/Not Resolved]
  - Injection site pain [Unknown]
  - Injection site erythema [Unknown]
  - Injection site swelling [Recovered/Resolved]
  - Headache [Recovered/Resolved]
  - Malaise [Unknown]
  - Chills [Unknown]

NARRATIVE: CASE EVENT DATE: 20240101
